FAERS Safety Report 10764921 (Version 1)
Quarter: 2015Q1

REPORT INFORMATION
  Report Type: Spontaneous
  Country: US (occurrence: None)
  Receive Date: 20150203
  Receipt Date: 20150203
  Transmission Date: 20150721
  Serious: Yes (Other)
  Sender: FDA-Public Use
  Company Number: 201500061

PATIENT
  Age: 30 Year
  Sex: Female

DRUGS (1)
  1. QUIXIN [Suspect]
     Active Substance: LEVOFLOXACIN

REACTIONS (6)
  - Hepatic failure [None]
  - Vanishing bile duct syndrome [None]
  - Disease progression [None]
  - Stevens-Johnson syndrome [None]
  - Disease recurrence [None]
  - Liver transplant [None]
